FAERS Safety Report 18696297 (Version 1)
Quarter: 2021Q1

REPORT INFORMATION
  Report Type: Spontaneous
  Country: CN (occurrence: CN)
  Receive Date: 20210104
  Receipt Date: 20210104
  Transmission Date: 20210419
  Serious: Yes (Other)
  Sender: FDA-Public Use
  Company Number: CN-PFIZER INC-2020514255

PATIENT
  Age: 65 Year
  Sex: Female
  Weight: 65 kg

DRUGS (1)
  1. EFEXOR XR [Suspect]
     Active Substance: VENLAFAXINE HYDROCHLORIDE
     Indication: DEPRESSION
     Dosage: 225.000 MG, 1X/DAY
     Route: 048
     Dates: start: 20201221, end: 20201223

REACTIONS (7)
  - Abdominal distension [Recovering/Resolving]
  - Haemorrhoids [Unknown]
  - Abdominal discomfort [Unknown]
  - Haemorrhoidal haemorrhage [Unknown]
  - Abnormal faeces [Recovering/Resolving]
  - Constipation [Recovering/Resolving]
  - Anxiety [Unknown]

NARRATIVE: CASE EVENT DATE: 20201222
